FAERS Safety Report 9062316 (Version 1)
Quarter: 2013Q1

REPORT INFORMATION
  Report Type: Spontaneous
  Country: US (occurrence: US)
  Receive Date: 20130213
  Receipt Date: 20130213
  Transmission Date: 20140127
  Serious: Yes (Hospitalization)
  Sender: FDA-Public Use
  Company Number: US-GLAXOSMITHKLINE-A0859000A

PATIENT
  Age: 46 Year
  Sex: Male
  Weight: 159.1 kg

DRUGS (1)
  1. AVANDIA [Suspect]
     Indication: DIABETES MELLITUS
     Dosage: 8MG UNKNOWN
     Route: 048
     Dates: start: 20030626

REACTIONS (6)
  - Cardiac failure congestive [Not Recovered/Not Resolved]
  - Depression [Unknown]
  - Obesity [Unknown]
  - Disability [Unknown]
  - Sleep apnoea syndrome [Unknown]
  - Lung disorder [Unknown]
